FAERS Safety Report 21479291 (Version 2)
Quarter: 2022Q4

REPORT INFORMATION
  Report Type: Spontaneous
  Country: US (occurrence: US)
  Receive Date: 20221019
  Receipt Date: 20221213
  Transmission Date: 20230113
  Serious: No
  Sender: FDA-Public Use
  Company Number: US-PFIZER INC-202201239477

PATIENT
  Age: 52 Year
  Sex: Male
  Weight: 66.9 kg

DRUGS (4)
  1. MEKTOVI [Suspect]
     Active Substance: BINIMETINIB
     Indication: Malignant melanoma
     Dosage: 15MG 3 TABLETS TWICE A DAY BY MOUTH
     Route: 048
     Dates: start: 20221009, end: 20221011
  2. MEKTOVI [Suspect]
     Active Substance: BINIMETINIB
     Dosage: 3 DF, 2X/DAY (3 TABLETS TWICE A DAY)
     Dates: end: 2022
  3. BRAFTOVI [Suspect]
     Active Substance: ENCORAFENIB
     Indication: Malignant melanoma
     Dosage: 75 MG 6 CAPSULES ONCE A DAY BY MOUTH
     Route: 048
     Dates: start: 20221009, end: 20221011
  4. BRAFTOVI [Suspect]
     Active Substance: ENCORAFENIB
     Dosage: 6 DF, DAILY ( 6 CAPSULES DAILY)
     Dates: end: 2022

REACTIONS (5)
  - Vision blurred [Recovered/Resolved]
  - Eye disorder [Recovered/Resolved]
  - Visual impairment [Recovered/Resolved]
  - Eye swelling [Recovered/Resolved]
  - Liver function test abnormal [Unknown]

NARRATIVE: CASE EVENT DATE: 20221001
